FAERS Safety Report 4360780-0 (Version None)
Quarter: 2004Q2

REPORT INFORMATION
  Report Type: 
  Country: None (occurrence: None)
  Receive Date: 20040514
  Receipt Date: 20040506
  Transmission Date: 20050107
  Serious: Yes (Other)
  Sender: FDA-Public Use
  Company Number: 200412368BWH

PATIENT
  Age: 53 Year
  Sex: Male
  Weight: 92.9874 kg

DRUGS (7)
  1. LEVITRA [Suspect]
     Indication: ERECTILE DYSFUNCTION
     Dosage: 10 MG, ONCE, ORAL; SEE IMAGE
     Route: 048
     Dates: start: 20040210
  2. LEVITRA [Suspect]
     Indication: ERECTILE DYSFUNCTION
     Dosage: 10 MG, ONCE, ORAL; SEE IMAGE
     Route: 048
     Dates: start: 20040301
  3. LEVITRA [Suspect]
     Indication: ERECTILE DYSFUNCTION
     Dosage: 10 MG, ONCE, ORAL; SEE IMAGE
     Route: 048
     Dates: start: 20040302
  4. LEVITRA [Suspect]
     Indication: ERECTILE DYSFUNCTION
     Dosage: 10 MG, ONCE, ORAL; SEE IMAGE
     Route: 048
     Dates: start: 20040308
  5. LEVITRA [Suspect]
     Indication: ERECTILE DYSFUNCTION
     Dosage: 10 MG, ONCE, ORAL; SEE IMAGE
     Route: 048
     Dates: start: 20040426
  6. LEVITRA [Suspect]
     Indication: ERECTILE DYSFUNCTION
     Dosage: 10 MG, ONCE, ORAL; SEE IMAGE
     Route: 048
     Dates: start: 20040506
  7. VIAGRA [Concomitant]

REACTIONS (3)
  - ERECTION INCREASED [None]
  - EXCESSIVE MASTURBATION [None]
  - HAEMATOSPERMIA [None]
